FAERS Safety Report 17971250 (Version 3)
Quarter: 2020Q3

REPORT INFORMATION
  Report Type: Report from Study
  Country: BR (occurrence: BR)
  Receive Date: 20200701
  Receipt Date: 20200716
  Transmission Date: 20201103
  Serious: Yes (Death, Other)
  Sender: FDA-Public Use
  Company Number: NVSC2020BR185171

PATIENT
  Age: 91 Year
  Sex: Male
  Weight: 76 kg

DRUGS (4)
  1. PANTOPRAZOLE [Concomitant]
     Active Substance: PANTOPRAZOLE
     Indication: ULCER
     Dosage: 2 DF, QD
     Route: 048
  2. DIOVAN [Suspect]
     Active Substance: VALSARTAN
     Indication: HYPERTENSION
     Dosage: 1 DF, QD
     Route: 048
  3. PANTOCAL [Concomitant]
     Indication: GASTRITIS
     Dosage: 2 DF, QD
     Route: 048
     Dates: start: 201905
  4. PANTOCAL [Concomitant]
     Indication: ANAL ULCER

REACTIONS (5)
  - Anaemia [Not Recovered/Not Resolved]
  - Gastric haemorrhage [Fatal]
  - Haemorrhage [Not Recovered/Not Resolved]
  - Haematemesis [Fatal]
  - Malaise [Fatal]

NARRATIVE: CASE EVENT DATE: 202004
